FAERS Safety Report 10050408 (Version 4)
Quarter: 2014Q2

REPORT INFORMATION
  Report Type: Spontaneous
  Country: LY (occurrence: LY)
  Receive Date: 20140401
  Receipt Date: 20140509
  Transmission Date: 20141212
  Serious: Yes (Death)
  Sender: FDA-Public Use
  Company Number: LY-ABBVIE-14P-097-1219214-00

PATIENT
  Age: 0 Day
  Sex: Male
  Weight: 1.8 kg

DRUGS (1)
  1. SURVANTA [Suspect]
     Indication: NEONATAL RESPIRATORY DISTRESS SYNDROME
     Dosage: 6 MILLILITER
     Route: 050
     Dates: start: 20140228, end: 20140301

REACTIONS (1)
  - Pulmonary haemorrhage [Fatal]
